FAERS Safety Report 20677929 (Version 9)
Quarter: 2023Q4

REPORT INFORMATION
  Report Type: Report from Study
  Country: US (occurrence: US)
  Receive Date: 20220406
  Receipt Date: 20231117
  Transmission Date: 20240110
  Serious: No
  Sender: FDA-Public Use
  Company Number: US-NOVARTISTESTPH-NVSC2022US077410

PATIENT
  Age: 52 Year
  Sex: Female

DRUGS (2)
  1. KESIMPTA [Suspect]
     Active Substance: OFATUMUMAB
     Indication: Multiple sclerosis
     Dosage: UNK
     Route: 058
     Dates: start: 20220403
  2. KESIMPTA [Suspect]
     Active Substance: OFATUMUMAB
     Dosage: 20 MG, QMO
     Route: 058

REACTIONS (15)
  - COVID-19 [Unknown]
  - Fatigue [Unknown]
  - Nausea [Recovered/Resolved]
  - Dizziness [Recovered/Resolved]
  - Primary stabbing headache [Recovered/Resolved]
  - Ear discomfort [Unknown]
  - Psoriasis [Unknown]
  - Eczema [Unknown]
  - Musculoskeletal discomfort [Recovering/Resolving]
  - Peroneal nerve palsy [Recovering/Resolving]
  - Headache [Recovered/Resolved]
  - Pyrexia [Recovered/Resolved]
  - Headache [Recovered/Resolved]
  - Injection site pain [Recovered/Resolved]
  - Injection site pain [Recovered/Resolved]

NARRATIVE: CASE EVENT DATE: 20220403
